FAERS Safety Report 21972690 (Version 1)
Quarter: 2023Q1

REPORT INFORMATION
  Report Type: Spontaneous
  Country: US (occurrence: US)
  Receive Date: 20230209
  Receipt Date: 20230209
  Transmission Date: 20230417
  Serious: No
  Sender: FDA-Public Use
  Company Number: US-BAYER-2023A015594

PATIENT
  Age: 49 Year
  Sex: Male

DRUGS (1)
  1. ALEVE [Suspect]
     Active Substance: NAPROXEN SODIUM
     Indication: Pain
     Dosage: 4 DF, ONCE ( AROUND 3:50PM)
     Route: 048

REACTIONS (1)
  - Accidental exposure to product [Not Recovered/Not Resolved]
